FAERS Safety Report 24816291 (Version 2)
Quarter: 2025Q1

REPORT INFORMATION
  Report Type: Spontaneous
  Country: US (occurrence: US)
  Receive Date: 20250107
  Receipt Date: 20250115
  Transmission Date: 20250409
  Serious: Yes (Other)
  Sender: PFIZER
  Company Number: US-MLMSERVICE-20241226-PI324751-00252-1

PATIENT
  Age: 51 Year
  Sex: Female

DRUGS (2)
  1. BUPRENORPHINE [Suspect]
     Active Substance: BUPRENORPHINE
     Indication: Musculoskeletal disorder
  2. OXYCODONE [Suspect]
     Active Substance: OXYCODONE
     Indication: Musculoskeletal disorder

REACTIONS (3)
  - Oesophageal obstruction [Recovering/Resolving]
  - Oesophageal motility disorder [Recovering/Resolving]
  - Off label use [Unknown]
